FAERS Safety Report 4961574-5 (Version None)
Quarter: 2006Q1

REPORT INFORMATION
  Report Type: 
  Country: None (occurrence: None)
  Receive Date: 20060329
  Receipt Date: 20060316
  Transmission Date: 20060701
  Serious: Yes (Other)
  Sender: FDA-Public Use
  Company Number: 2006018383

PATIENT
  Age: 27 Year
  Sex: Female

DRUGS (6)
  1. AZITHROMYCIN [Suspect]
     Indication: NASOPHARYNGITIS
     Dosage: 500 MG (500 MG, DAILY), ORAL
     Route: 048
     Dates: start: 20060128, end: 20060128
  2. AZITHROMYCIN [Suspect]
     Indication: PHARYNGITIS
     Dosage: 500 MG (500 MG, DAILY), ORAL
     Route: 048
     Dates: start: 20060128, end: 20060128
  3. TAMIFLU [Suspect]
     Indication: INFLUENZA
     Dosage: 150 MG (75 MG, 2 IN 1 D), ORAL
     Route: 048
     Dates: start: 20060128, end: 20060129
  4. TAMIFLU [Suspect]
     Indication: NASOPHARYNGITIS
     Dosage: 150 MG (75 MG, 2 IN 1 D), ORAL
     Route: 048
     Dates: start: 20060128, end: 20060129
  5. TRANSAMIN (TRANEXAMIC ACID) [Concomitant]
  6. CALONAL (PARACETAMOL) [Concomitant]

REACTIONS (5)
  - ENTEROCOLITIS HAEMORRHAGIC [None]
  - INTESTINAL ISCHAEMIA [None]
  - LARGE INTESTINAL ULCER [None]
  - REFUSAL OF TREATMENT BY PATIENT [None]
  - VOMITING [None]
